FAERS Safety Report 15156552 (Version 3)
Quarter: 2018Q4

REPORT INFORMATION
  Report Type: Spontaneous
  Country: CH (occurrence: CH)
  Receive Date: 20180717
  Receipt Date: 20181008
  Transmission Date: 20190204
  Serious: Yes (Other)
  Sender: FDA-Public Use
  Company Number: CH-BEH-2018092698

PATIENT
  Age: 37 Year
  Sex: Female

DRUGS (9)
  1. ANDREAFOL [Concomitant]
  2. FOLIC ACID. [Concomitant]
     Active Substance: FOLIC ACID
  3. ELEVIT                             /01730301/ [Concomitant]
     Active Substance: FOLIC ACID\IRON\MINERALS\VITAMINS
  4. FRAGMIN [Concomitant]
     Active Substance: DALTEPARIN SODIUM
  5. UTROGESTAN [Concomitant]
     Active Substance: PROGESTERONE
  6. ASPIRIN CARDIO [Concomitant]
     Active Substance: ASPIRIN
  7. PRIVIGEN [Suspect]
     Active Substance: HUMAN IMMUNOGLOBULIN G
     Indication: PLACENTAL INSUFFICIENCY
     Dosage: 4 DOSES BETWEEN THE 1ST AND 2ND TRIMESTER
     Route: 065
  8. PRIMPERAN [Concomitant]
     Active Substance: METOCLOPRAMIDE HYDROCHLORIDE
  9. CELESTONE CHRONODOSE [Concomitant]
     Active Substance: BETAMETHASONE ACETATE\BETAMETHASONE SODIUM PHOSPHATE

REACTIONS (1)
  - Abortion spontaneous [Unknown]

NARRATIVE: CASE EVENT DATE: 201705
